FAERS Safety Report 6274624-3 (Version None)
Quarter: 2009Q3

REPORT INFORMATION
  Report Type: 
  Country: None (occurrence: None)
  Receive Date: 20090717
  Receipt Date: 20090608
  Transmission Date: 20100115
  Serious: Yes (Death, Hospitalization, Other)
  Sender: FDA-Public Use
  Company Number: 2008AL008129

PATIENT
  Age: 68 Year
  Sex: Female

DRUGS (20)
  1. DIGOXIN [Suspect]
     Dosage: 0.25MG, DAILY, PO
     Route: 048
  2. METOPROLOL SUCCINATE [Concomitant]
  3. AVAPRO [Concomitant]
  4. LAIX [Concomitant]
  5. KLOR-CON [Concomitant]
  6. PRAVACHOL [Concomitant]
  7. COUMADIN [Concomitant]
  8. GABAPENTIN [Concomitant]
  9. BYETTA [Concomitant]
  10. FOLIC ACID [Concomitant]
  11. ALPRAZOLAM [Concomitant]
  12. CELEXA [Concomitant]
  13. METFORMIN HCL [Concomitant]
  14. BUSPIRONE HCL [Concomitant]
  15. NITROSTAT [Concomitant]
  16. REGLAN [Concomitant]
  17. MECLIZINE [Concomitant]
  18. PROMETHAZINE [Concomitant]
  19. AMBIEN [Concomitant]
  20. PROTONIX [Concomitant]

REACTIONS (11)
  - ABDOMINAL PAIN [None]
  - ASTHENIA [None]
  - CHEST PAIN [None]
  - DIZZINESS [None]
  - DYSPNOEA [None]
  - GASTROINTESTINAL DISORDER [None]
  - INJURY [None]
  - NAUSEA [None]
  - PALPITATIONS [None]
  - PRESYNCOPE [None]
  - VOMITING [None]
